FAERS Safety Report 11562072 (Version 1)
Quarter: 2015Q3

REPORT INFORMATION
  Report Type: Spontaneous
  Country: US (occurrence: US)
  Receive Date: 20150916
  Receipt Date: 20150916
  Transmission Date: 20151125
  Serious: No
  Sender: FDA-Public Use
  Company Number: US-ELI_LILLY_AND_COMPANY-US200811004265

PATIENT
  Sex: Female
  Weight: 98.59 kg

DRUGS (22)
  1. ULTRACET [Concomitant]
     Active Substance: ACETAMINOPHEN\TRAMADOL HYDROCHLORIDE
  2. FORTEO [Suspect]
     Active Substance: TERIPARATIDE
     Indication: OSTEOPOROSIS
     Dosage: 20 UG, DAILY (1/D)
     Dates: start: 200802
  3. AMLODIPINE /00972402/ [Concomitant]
     Active Substance: AMLODIPINE BESYLATE
  4. LISINOPRIL. [Concomitant]
     Active Substance: LISINOPRIL
  5. CALCIUM WITH VITAMIN D /00944201/ [Concomitant]
     Active Substance: CALCIUM\VITAMIN D
  6. DIOVAN [Concomitant]
     Active Substance: VALSARTAN
  7. PREVACID [Concomitant]
     Active Substance: LANSOPRAZOLE
  8. MELOXICAM. [Concomitant]
     Active Substance: MELOXICAM
  9. ALBUTEROL. [Concomitant]
     Active Substance: ALBUTEROL
  10. SPIRIVA [Concomitant]
     Active Substance: TIOTROPIUM BROMIDE MONOHYDRATE
  11. FUROSEMIDE. [Concomitant]
     Active Substance: FUROSEMIDE
  12. OXYGEN. [Concomitant]
     Active Substance: OXYGEN
  13. CYMBALTA [Concomitant]
     Active Substance: DULOXETINE HYDROCHLORIDE
  14. REQUIP [Concomitant]
     Active Substance: ROPINIROLE HYDROCHLORIDE
  15. FORADIL [Concomitant]
     Active Substance: FORMOTEROL FUMARATE
  16. QVAR [Concomitant]
     Active Substance: BECLOMETHASONE DIPROPIONATE
  17. TYLENOL PM [Concomitant]
     Active Substance: ACETAMINOPHEN\DIPHENHYDRAMINE
  18. POTASSIUM [Concomitant]
     Active Substance: POTASSIUM
  19. METOPROLOL [Concomitant]
     Active Substance: METOPROLOL
  20. TRICOR [Concomitant]
     Active Substance: FENOFIBRATE
  21. PRAVASTATIN [Concomitant]
     Active Substance: PRAVASTATIN\PRAVASTATIN SODIUM
  22. ZETIA [Concomitant]
     Active Substance: EZETIMIBE

REACTIONS (2)
  - Tooth loss [Recovered/Resolved]
  - Bone pain [Not Recovered/Not Resolved]

NARRATIVE: CASE EVENT DATE: 2008
